FAERS Safety Report 17920471 (Version 3)
Quarter: 2020Q4

REPORT INFORMATION
  Report Type: Spontaneous
  Country: US (occurrence: US)
  Receive Date: 20200621
  Receipt Date: 20201112
  Transmission Date: 20210113
  Serious: Yes (Hospitalization)
  Sender: FDA-Public Use
  Company Number: US-ELI_LILLY_AND_COMPANY-US202006007500

PATIENT
  Sex: Male

DRUGS (17)
  1. BASAGLAR [Suspect]
     Active Substance: INSULIN GLARGINE
     Indication: DIABETES MELLITUS
     Dosage: 74 U, BID
     Route: 058
  2. BASAGLAR [Suspect]
     Active Substance: INSULIN GLARGINE
     Dosage: 75 U, BID
     Route: 058
  3. ADMELOG [Concomitant]
     Active Substance: INSULIN LISPRO
     Indication: DIABETES MELLITUS
     Dosage: 48 U, OTHER BEFORE MEAL
  4. BASAGLAR [Suspect]
     Active Substance: INSULIN GLARGINE
     Dosage: 72 U, BID
     Route: 058
  5. BASAGLAR [Suspect]
     Active Substance: INSULIN GLARGINE
     Dosage: 72 U, BID
     Route: 058
  6. BASAGLAR [Suspect]
     Active Substance: INSULIN GLARGINE
     Dosage: 75 U, BID
     Route: 058
  7. BASAGLAR [Suspect]
     Active Substance: INSULIN GLARGINE
     Dosage: 75 U, BID
     Route: 058
  8. ADMELOG [Concomitant]
     Active Substance: INSULIN LISPRO
     Dosage: 48 U, OTHER BEFORE BEDTIME
  9. BASAGLAR [Suspect]
     Active Substance: INSULIN GLARGINE
     Dosage: 75 U, BID
     Route: 058
  10. ADMELOG [Concomitant]
     Active Substance: INSULIN LISPRO
     Dosage: 20 U (IF HE EATS AT NIGHT BEFORE BED)
  11. BASAGLAR [Suspect]
     Active Substance: INSULIN GLARGINE
     Indication: DIABETES MELLITUS
     Dosage: 74 U, BID
     Route: 058
  12. BASAGLAR [Suspect]
     Active Substance: INSULIN GLARGINE
     Indication: DIABETES MELLITUS
     Dosage: 74 U, BID
     Route: 058
  13. BASAGLAR [Suspect]
     Active Substance: INSULIN GLARGINE
     Dosage: 75 U, BID
     Route: 058
  14. BASAGLAR [Suspect]
     Active Substance: INSULIN GLARGINE
     Dosage: 72 U, BID
     Route: 058
  15. BASAGLAR [Suspect]
     Active Substance: INSULIN GLARGINE
     Dosage: 75 U, BID
     Route: 058
  16. ADMELOG [Concomitant]
     Active Substance: INSULIN LISPRO
     Dosage: 42 U, TID (IF BLOOD SUGAR IS 201)
  17. BASAGLAR [Suspect]
     Active Substance: INSULIN GLARGINE
     Dosage: 75 U, BID
     Route: 058

REACTIONS (19)
  - Feeling abnormal [Unknown]
  - Tremor [Unknown]
  - Pain [Unknown]
  - Blood glucose decreased [Unknown]
  - Gastritis [Unknown]
  - Constipation [Unknown]
  - Abdominal pain [Unknown]
  - Blood glucose increased [Unknown]
  - Limb discomfort [Not Recovered/Not Resolved]
  - Inappropriate schedule of product administration [Unknown]
  - Abdominal pain upper [Unknown]
  - Musculoskeletal discomfort [Not Recovered/Not Resolved]
  - Insomnia [Unknown]
  - Expired product administered [Unknown]
  - Hyperhidrosis [Unknown]
  - Heart rate irregular [Unknown]
  - Back pain [Unknown]
  - Hypertension [Unknown]
  - Underdose [Unknown]
